FAERS Safety Report 17820076 (Version 1)
Quarter: 2020Q2

REPORT INFORMATION
  Report Type: Report from Study
  Country: None (occurrence: US)
  Receive Date: 20200525
  Receipt Date: 20200525
  Transmission Date: 20200714
  Serious: Yes (Hospitalization)
  Sender: FDA-Public Use
  Company Number: US-ABBVIE-20K-163-3373747-00

PATIENT
  Age: 44 Year
  Sex: Female
  Weight: 68.1 kg

DRUGS (5)
  1. HUMIRA [Suspect]
     Active Substance: ADALIMUMAB
     Indication: OSTEOARTHRITIS
     Route: 058
     Dates: start: 20200515
  2. MYOCRISIN [Concomitant]
     Active Substance: GOLD SODIUM THIOMALATE
     Indication: PRODUCT USED FOR UNKNOWN INDICATION
  3. HUMIRA [Suspect]
     Active Substance: ADALIMUMAB
     Indication: RHEUMATOID ARTHRITIS
     Route: 058
     Dates: start: 2018, end: 20200320
  4. OXYCODONE [Suspect]
     Active Substance: OXYCODONE
     Indication: MYALGIA
     Dosage: ONE TO THREE TABLETS EVERY FOUR HOURS AS NEEDED
     Route: 048
     Dates: start: 202004
  5. EXCEDRIN MIGRAINE [Concomitant]
     Active Substance: ACETAMINOPHEN\ASPIRIN\CAFFEINE
     Indication: MIGRAINE

REACTIONS (8)
  - Cervical spinal stenosis [Recovering/Resolving]
  - Intervertebral disc protrusion [Recovering/Resolving]
  - Dyskinesia [Recovered/Resolved]
  - Hypoaesthesia [Recovering/Resolving]
  - Off label use [Not Recovered/Not Resolved]
  - Neck deformity [Recovering/Resolving]
  - Myalgia [Recovering/Resolving]
  - Nausea [Recovering/Resolving]

NARRATIVE: CASE EVENT DATE: 2018
